FAERS Safety Report 17882612 (Version 1)
Quarter: 2020Q2

REPORT INFORMATION
  Report Type: Spontaneous
  Country: US (occurrence: US)
  Receive Date: 20200610
  Receipt Date: 20200610
  Transmission Date: 20200714
  Serious: Yes (Other)
  Sender: FDA-Public Use
  Company Number: US-NAPPMUNDI-USA-2020-0153841

PATIENT
  Age: 86 Year
  Sex: Female

DRUGS (3)
  1. GABAPENTIN. [Suspect]
     Active Substance: GABAPENTIN
     Indication: TRIGEMINAL NEURALGIA
     Dosage: UNK
     Route: 065
  2. MORPHINE SULFATE EXTENDED-RELEASE TABLETS (RHODES 74-769, 74-862) [Suspect]
     Active Substance: MORPHINE SULFATE
     Dosage: 30 MG, BID
     Route: 048
     Dates: start: 202004
  3. MORPHINE SULFATE EXTENDED-RELEASE TABLETS (RHODES 74-769, 74-862) [Suspect]
     Active Substance: MORPHINE SULFATE
     Indication: TRIGEMINAL NEURALGIA
     Dosage: UNK
     Route: 048
     Dates: start: 2019

REACTIONS (11)
  - Nausea [Unknown]
  - Product physical issue [Unknown]
  - Abdominal pain upper [Unknown]
  - Headache [Unknown]
  - Clostridium difficile infection [Unknown]
  - Malaise [Unknown]
  - Traumatic tooth displacement [Unknown]
  - Animal scratch [Unknown]
  - Dizziness [Unknown]
  - Tooth abscess [Unknown]
  - Drug ineffective [Unknown]

NARRATIVE: CASE EVENT DATE: 201912
